FAERS Safety Report 6003569-9 (Version None)
Quarter: 2008Q4

REPORT INFORMATION
  Report Type: 
  Country: None (occurrence: None)
  Receive Date: 20081212
  Receipt Date: 20081212
  Transmission Date: 20090506
  Serious: Yes (Life-Threatening, Hospitalization)
  Sender: FDA-Public Use
  Company Number: None

PATIENT
  Sex: Female
  Weight: 66.6788 kg

DRUGS (1)
  1. LEVORA 0.15/30-28 [Suspect]
     Indication: CONTRACEPTION
     Dosage: 0.15/30 DAILY ORAL
     Route: 048
     Dates: start: 20081014, end: 20081028

REACTIONS (1)
  - PULMONARY EMBOLISM [None]
